FAERS Safety Report 11244092 (Version 1)
Quarter: 2015Q3

REPORT INFORMATION
  Report Type: Spontaneous
  Country: US (occurrence: None)
  Receive Date: 20150702
  Receipt Date: 20150702
  Transmission Date: 20151125
  Serious: No
  Sender: FDA-Public Use
  Company Number: None

PATIENT
  Age: 21 Year
  Sex: Female
  Weight: 67.13 kg

DRUGS (4)
  1. PYRIDIUM [Suspect]
     Active Substance: PHENAZOPYRIDINE
  2. NEXPLANON [Suspect]
     Active Substance: ETONOGESTREL
  3. DOXYCYCLINE. [Concomitant]
     Active Substance: DOXYCYCLINE
  4. CONCERTA [Concomitant]
     Active Substance: METHYLPHENIDATE HYDROCHLORIDE

REACTIONS (4)
  - Dysuria [None]
  - Blister [None]
  - Implant site erythema [None]
  - Implant site rash [None]

NARRATIVE: CASE EVENT DATE: 20150630
